FAERS Safety Report 9943391 (Version 2)
Quarter: 2014Q1

REPORT INFORMATION
  Report Type: Report from Study
  Country: US (occurrence: US)
  Receive Date: 20140303
  Receipt Date: 20140303
  Transmission Date: 20141002
  Serious: Yes (Hospitalization)
  Sender: FDA-Public Use
  Company Number: US-MYLANLABS-2014S1004017

PATIENT
  Age: 82 Year
  Sex: Male
  Weight: 97.8 kg

DRUGS (4)
  1. ETOPOSIDE CAPSULES [Suspect]
     Indication: CHRONIC LYMPHOCYTIC LEUKAEMIA
     Route: 048
     Dates: start: 20130911, end: 20130930
  2. ETOPOSIDE CAPSULES [Suspect]
     Indication: OFF LABEL USE
     Route: 048
     Dates: start: 20130911, end: 20130930
  3. PROCARBAZINE [Suspect]
     Indication: CHRONIC LYMPHOCYTIC LEUKAEMIA
     Route: 048
     Dates: start: 20130911, end: 20130930
  4. PREDNISONE [Suspect]
     Indication: CHRONIC LYMPHOCYTIC LEUKAEMIA
     Route: 048
     Dates: start: 20130911, end: 20130930

REACTIONS (5)
  - Sepsis [Recovered/Resolved]
  - Cellulitis [Recovered/Resolved]
  - Fluid overload [None]
  - Chronic lymphocytic leukaemia [None]
  - Malignant neoplasm progression [None]
